FAERS Safety Report 12642529 (Version 2)
Quarter: 2017Q2

REPORT INFORMATION
  Report Type: Spontaneous
  Country: US (occurrence: US)
  Receive Date: 20160810
  Receipt Date: 20170626
  Transmission Date: 20170830
  Serious: Yes (Hospitalization, Other)
  Sender: FDA-Public Use
  Company Number: US-ALLERGAN-1647151

PATIENT
  Age: 38 Year
  Sex: Male

DRUGS (4)
  1. ESCITALOPRAM [Concomitant]
     Active Substance: ESCITALOPRAM OXALATE
     Indication: ANXIETY
     Dosage: 20 MG, QD
  2. DELZICOL [Suspect]
     Active Substance: MESALAMINE
     Dosage: 2.4 G, BID
  3. DELZICOL [Suspect]
     Active Substance: MESALAMINE
     Indication: INFLAMMATORY BOWEL DISEASE
     Dosage: 800 MG, TID
     Route: 048
  4. CANASA [Suspect]
     Active Substance: MESALAMINE
     Indication: INFLAMMATORY BOWEL DISEASE
     Dosage: 1000 MG, QHS
     Route: 054

REACTIONS (2)
  - Myocarditis [Recovered/Resolved]
  - Aphthous ulcer [Unknown]
